FAERS Safety Report 21989315 (Version 1)
Quarter: 2023Q1

REPORT INFORMATION
  Report Type: Spontaneous
  Country: US (occurrence: None)
  Receive Date: 20230212
  Receipt Date: 20230212
  Transmission Date: 20230417
  Serious: No
  Sender: FDA-Public Use
  Company Number: None

PATIENT
  Age: 24 Year
  Sex: Female
  Weight: 98.1 kg

DRUGS (8)
  1. VALIUM [Suspect]
     Active Substance: DIAZEPAM
     Indication: Muscle spasms
     Dosage: OTHER QUANTITY : 10 TABLET(S);?FREQUENCY : AT BEDTIME;?
     Route: 048
  2. NORETHINDRONE [Concomitant]
     Active Substance: NORETHINDRONE
  3. KYLEENA [Concomitant]
     Active Substance: LEVONORGESTREL
  4. LEXAPRO [Concomitant]
     Active Substance: ESCITALOPRAM OXALATE
  5. AMITRIPTYLINE [Concomitant]
     Active Substance: AMITRIPTYLINE
  6. CALCIUM\CHOLECALCIFEROL [Concomitant]
     Active Substance: CALCIUM\CHOLECALCIFEROL
  7. TYLENOL [Concomitant]
  8. NAPROXEN SODIUM [Concomitant]
     Active Substance: NAPROXEN SODIUM

REACTIONS (2)
  - Insomnia [None]
  - Restlessness [None]

NARRATIVE: CASE EVENT DATE: 20230209
